FAERS Safety Report 5108160-4 (Version None)
Quarter: 2006Q3

REPORT INFORMATION
  Report Type: 
  Country: None (occurrence: None)
  Receive Date: 20060919
  Receipt Date: 20060816
  Transmission Date: 20061208
  Serious: Yes (Other)
  Sender: FDA-Public Use
  Company Number: DE-GLAXOSMITHKLINE-D0050630A

PATIENT
  Age: 20 Year
  Sex: Female

DRUGS (5)
  1. EPIVIR [Suspect]
     Indication: HIV INFECTION
     Dosage: 300MG PER DAY
     Route: 065
     Dates: start: 20060105
  2. RETROVIR [Suspect]
     Indication: HIV INFECTION
     Dosage: 100MG PER DAY
     Route: 065
     Dates: start: 20060425, end: 20060425
  3. ZERIT [Suspect]
     Indication: HIV INFECTION
     Dosage: 30MG PER DAY
     Route: 065
     Dates: start: 20060105
  4. VIRAMUNE [Suspect]
     Indication: HIV INFECTION
     Dosage: 400MG PER DAY
     Route: 065
     Dates: start: 20060105
  5. FOLATE [Concomitant]
     Route: 065

REACTIONS (1)
  - PREMATURE LABOUR [None]
